FAERS Safety Report 4517911-9 (Version None)
Quarter: 2004Q4

REPORT INFORMATION
  Report Type: 
  Country: None (occurrence: None)
  Receive Date: 20041130
  Receipt Date: 20041118
  Transmission Date: 20050328
  Serious: Yes (Life-Threatening, Hospitalization)
  Sender: FDA-Public Use
  Company Number: EWC040438731

PATIENT
  Age: 73 Year
  Sex: Female
  Weight: 70 kg

DRUGS (4)
  1. ZYPREXA [Suspect]
     Indication: AGITATION
     Dosage: 10 MG/1 DAY
     Dates: start: 20040218, end: 20040218
  2. DROPERIDOL [Concomitant]
  3. TRAZOLAN (TRAZODONE HYDROCHLORIDE) [Concomitant]
  4. PHENYTOIN SODIUM [Concomitant]

REACTIONS (11)
  - AGE INDETERMINATE MYOCARDIAL INFARCTION [None]
  - ATRIOVENTRICULAR BLOCK [None]
  - BUNDLE BRANCH BLOCK RIGHT [None]
  - DRUG INEFFECTIVE [None]
  - ELECTROCARDIOGRAM QRS COMPLEX [None]
  - ELECTROCARDIOGRAM QT PROLONGED [None]
  - MITRAL VALVE INCOMPETENCE [None]
  - TORSADE DE POINTES [None]
  - TRICUSPID VALVE INCOMPETENCE [None]
  - VENTRICULAR DYSFUNCTION [None]
  - VENTRICULAR FIBRILLATION [None]
